FAERS Safety Report 5040438-5 (Version None)
Quarter: 2006Q2

REPORT INFORMATION
  Report Type: 
  Country: None (occurrence: None)
  Receive Date: 20060630
  Receipt Date: 20060622
  Transmission Date: 20061013
  Serious: Yes (Hospitalization)
  Sender: FDA-Public Use
  Company Number: DE-AMGEN-UK184235

PATIENT
  Sex: Male
  Weight: 96 kg

DRUGS (6)
  1. KEPIVANCE [Suspect]
     Indication: MUCOSAL INFLAMMATION
     Route: 065
  2. VINCRISTINE [Concomitant]
     Route: 065
  3. IFOSFAMIDE [Concomitant]
     Route: 065
  4. ETOPOSIDE [Concomitant]
     Route: 065
  5. ARA-C [Concomitant]
     Route: 065
  6. CORTISONE ACETATE TAB [Concomitant]
     Route: 065

REACTIONS (5)
  - ABASIA [None]
  - DYSAESTHESIA [None]
  - DYSGEUSIA [None]
  - INTERTRIGO [None]
  - RASH [None]
